FAERS Safety Report 8586605-5 (Version None)
Quarter: 2012Q3

REPORT INFORMATION
  Report Type: 
  Country: None (occurrence: None)
  Receive Date: 20120810
  Receipt Date: 20120807
  Transmission Date: 20120928
  Serious: Yes (Other)
  Sender: FDA-Public Use
  Company Number: GXKR2012DE002527

PATIENT

DRUGS (1)
  1. PACLITAXEL [Suspect]
     Indication: BREAST CANCER
     Dosage: 142 UKN, QW
     Route: 042

REACTIONS (2)
  - RETINAL EXUDATES [None]
  - VISUAL IMPAIRMENT [None]
